FAERS Safety Report 4626407-5 (Version None)
Quarter: 2005Q1

REPORT INFORMATION
  Report Type: 
  Country: None (occurrence: None)
  Receive Date: 20050330
  Receipt Date: 20050315
  Transmission Date: 20050727
  Serious: Yes (Hospitalization)
  Sender: FDA-Public Use
  Company Number: MEDI-0002993

PATIENT
  Age: 77 Year
  Sex: Male

DRUGS (19)
  1. ETHYOL [Suspect]
     Indication: CHEMOTHERAPY
     Dosage: 500 MG, 5 IN 1 WK, SUBCUTANEOUS
     Route: 058
     Dates: start: 20050126, end: 20050207
  2. ETHYOL [Suspect]
     Indication: RADIOTHERAPY
     Dosage: 500 MG, 5 IN 1 WK, SUBCUTANEOUS
     Route: 058
     Dates: start: 20050126, end: 20050207
  3. ETHYOL [Suspect]
  4. ETHYOL [Suspect]
  5. ETHYOL [Suspect]
  6. RADIATION THERAPY [Concomitant]
  7. TAXOL [Concomitant]
  8. CARBOPLATIN [Concomitant]
  9. ANZEMET (DOLASETRON MESILATE) [Concomitant]
  10. DECADRON [Concomitant]
  11. TAGAMET [Concomitant]
  12. BENADRYL [Concomitant]
  13. ARANESP [Concomitant]
  14. ACETAMINOPHEN [Concomitant]
  15. HYDROCHLOROQUINE SULFATE (HYDROXYCHLOROQUINE SULFATE) [Concomitant]
  16. HYDROCHLOROTHIAZIDE [Concomitant]
  17. FELODIPINE [Concomitant]
  18. LISINOPRIL [Concomitant]
  19. ASPIRIN [Concomitant]

REACTIONS (4)
  - INJECTION SITE REACTION [None]
  - PYREXIA [None]
  - RASH GENERALISED [None]
  - URTICARIA [None]
